FAERS Safety Report 24706212 (Version 1)
Quarter: 2024Q4

REPORT INFORMATION
  Report Type: Spontaneous
  Country: HU (occurrence: HU)
  Receive Date: 20241206
  Receipt Date: 20241206
  Transmission Date: 20250115
  Serious: Yes (Other)
  Sender: AMGEN
  Company Number: HU-PFIZER INC-PV202400146224

PATIENT
  Age: 65 Year
  Sex: Female
  Weight: 95 kg

DRUGS (10)
  1. TRASTUZUMAB [Suspect]
     Active Substance: TRASTUZUMAB
     Indication: Breast cancer metastatic
     Dosage: 744 MILLIGRAM (FIRST CYCLE (744 MG))
     Route: 040
     Dates: start: 20240812, end: 20240812
  2. TRASTUZUMAB [Suspect]
     Active Substance: TRASTUZUMAB
     Dosage: 558 MILLIGRAM (SECOND CYCLE (558 MG))
     Route: 040
     Dates: start: 20240904, end: 20240904
  3. TUKYSA [Suspect]
     Active Substance: TUCATINIB
     Indication: Breast cancer metastatic
     Dosage: 300 MILLIGRAM (FIRST CYCLE 2X300 MG)
     Route: 048
     Dates: start: 20240812, end: 20240904
  4. TUKYSA [Suspect]
     Active Substance: TUCATINIB
     Dosage: 300 MILLIGRAM (SECOND CYCLE (REDUCED DOSE) (2X300 MG))
     Route: 048
     Dates: start: 20240904, end: 20240925
  5. TUKYSA [Suspect]
     Active Substance: TUCATINIB
     Dosage: UNK
     Route: 048
     Dates: start: 20241016, end: 20241024
  6. CAPECITABINE [Suspect]
     Active Substance: CAPECITABINE
     Indication: Breast cancer metastatic
     Dosage: 2000 MILLIGRAM (FIRST CYCLE (2X2000 MG))
     Route: 048
     Dates: start: 20240812, end: 20240825
  7. CAPECITABINE [Suspect]
     Active Substance: CAPECITABINE
     Dosage: 2000 MILLIGRAM (SECOND CYCLE (2X2000 MG)
     Route: 048
     Dates: start: 20240904
  8. AMLODIPINE BESYLATE [Concomitant]
     Active Substance: AMLODIPINE BESYLATE
     Indication: Hypertension
     Dosage: UNK
     Route: 065
  9. FOSICARD [Concomitant]
     Indication: Hypertension
     Dosage: UNK
     Route: 065
  10. Citrocalcium [Concomitant]
     Indication: Osteoporosis
     Dosage: UNK
     Route: 065

REACTIONS (3)
  - Aspartate aminotransferase increased [Recovering/Resolving]
  - Alanine aminotransferase increased [Recovering/Resolving]
  - Hepatic pain [Recovered/Resolved]

NARRATIVE: CASE EVENT DATE: 20240924
